FAERS Safety Report 14947254 (Version 1)
Quarter: 2018Q2

REPORT INFORMATION
  Report Type: Spontaneous
  Country: TW (occurrence: TW)
  Receive Date: 20180529
  Receipt Date: 20180529
  Transmission Date: 20180711
  Serious: Yes (Hospitalization, Other)
  Sender: FDA-Public Use
  Company Number: TW-TOLMAR, INC.-2018TW005457

PATIENT

DRUGS (1)
  1. ELIGARD [Suspect]
     Active Substance: LEUPROLIDE ACETATE
     Indication: PROSTATE CANCER METASTATIC
     Dosage: 3.75 MG, MONTHLY
     Route: 058

REACTIONS (4)
  - Mania [Recovered/Resolved]
  - Somnolence [Recovering/Resolving]
  - Hepatic function abnormal [Recovering/Resolving]
  - Hepatitis C [Recovering/Resolving]
